FAERS Safety Report 21339350 (Version 1)
Quarter: 2022Q3

REPORT INFORMATION
  Report Type: Spontaneous
  Country: US (occurrence: US)
  Receive Date: 20220915
  Receipt Date: 20220915
  Transmission Date: 20221026
  Serious: No
  Sender: FDA-Public Use
  Company Number: US-SA-SAC20220909000199

PATIENT
  Sex: Female
  Weight: 79 kg

DRUGS (24)
  1. DUPIXENT [Suspect]
     Active Substance: DUPILUMAB
     Indication: Rhinitis allergic
     Dosage: 300 MG, QOW
     Route: 058
  2. DUPIXENT [Suspect]
     Active Substance: DUPILUMAB
     Indication: Nasal polyps
  3. PREDNISONE [Concomitant]
     Active Substance: PREDNISONE
     Dosage: UNK
  4. TADALAFIL [Concomitant]
     Active Substance: TADALAFIL
  5. CARVEDILOL [Concomitant]
     Active Substance: CARVEDILOL
  6. TRAMADOL HCL [Concomitant]
     Active Substance: TRAMADOL HYDROCHLORIDE
  7. BUDESONIDE [Concomitant]
     Active Substance: BUDESONIDE
     Dosage: 0.25MG/2ML
  8. ARNUITY ELLIPTA [Concomitant]
     Active Substance: FLUTICASONE FUROATE
  9. PANTOPRAZOLE SODIUM [Concomitant]
     Active Substance: PANTOPRAZOLE SODIUM
  10. ONDANSETRON HCL [Concomitant]
     Active Substance: ONDANSETRON HYDROCHLORIDE
  11. LASIX [Concomitant]
     Active Substance: FUROSEMIDE
  12. VOLTAREN ARTHRITIS PAIN [Concomitant]
     Active Substance: DICLOFENAC SODIUM
  13. LOSARTAN POTASSIUM [Concomitant]
     Active Substance: LOSARTAN POTASSIUM
  14. CLOPIDOGREL [Concomitant]
     Active Substance: CLOPIDOGREL BISULFATE
  15. AMLODIPINE BESYLATE [Concomitant]
     Active Substance: AMLODIPINE BESYLATE
  16. BENZONATATE [Concomitant]
     Active Substance: BENZONATATE
  17. LIDOCAINE [Concomitant]
     Active Substance: LIDOCAINE
  18. CELEBREX [Concomitant]
     Active Substance: CELECOXIB
  19. GLIMEPIRIDE [Concomitant]
     Active Substance: GLIMEPIRIDE
  20. CYCLOBENZAPRINE HYDROCHLORIDE [Concomitant]
     Active Substance: CYCLOBENZAPRINE HYDROCHLORIDE
  21. COLESTIPOL [Concomitant]
     Active Substance: COLESTIPOL
  22. LEVOTHYROXINE SODIUM [Concomitant]
     Active Substance: LEVOTHYROXINE SODIUM
  23. METOCLOPRAMIDE [Concomitant]
     Active Substance: METOCLOPRAMIDE
  24. HYDROXYZINE [Concomitant]
     Active Substance: HYDROXYZINE HYDROCHLORIDE
     Dosage: 10MG

REACTIONS (3)
  - Sinusitis [Unknown]
  - Sluggishness [Unknown]
  - Product use in unapproved indication [Unknown]
